FAERS Safety Report 11622973 (Version 1)
Quarter: 2015Q4

REPORT INFORMATION
  Report Type: Spontaneous
  Country: US (occurrence: US)
  Receive Date: 20151013
  Receipt Date: 20151013
  Transmission Date: 20160304
  Serious: No
  Sender: FDA-Public Use
  Company Number: US-JNJFOC-20131018515

PATIENT
  Age: 2 Month
  Sex: Female
  Weight: 4.54 kg

DRUGS (2)
  1. CONCENTRATED TYLENOL INFANTS [Suspect]
     Active Substance: ACETAMINOPHEN
     Route: 048
  2. CONCENTRATED TYLENOL INFANTS [Suspect]
     Active Substance: ACETAMINOPHEN
     Indication: PAIN
     Route: 048
     Dates: start: 20131028, end: 20131028

REACTIONS (2)
  - Choking sensation [Recovered/Resolved]
  - Vomiting [Recovered/Resolved]

NARRATIVE: CASE EVENT DATE: 20131028
